FAERS Safety Report 11098045 (Version 1)
Quarter: 2015Q2

REPORT INFORMATION
  Report Type: Spontaneous
  Country: KR (occurrence: KR)
  Receive Date: 20150507
  Receipt Date: 20150507
  Transmission Date: 20150821
  Serious: Yes (Hospitalization)
  Sender: FDA-Public Use
  Company Number: KR-OTSUKA PHARMACEUTICAL CO.-2015_000280

PATIENT
  Age: 74 Year
  Sex: Male
  Weight: 62 kg

DRUGS (29)
  1. DACOGEN [Suspect]
     Active Substance: DECITABINE
     Dosage: 20 MG, 1 IN 1 DAY
     Route: 042
     Dates: start: 20150309
  2. ARESTAL [Concomitant]
     Active Substance: LOPERAMIDE OXIDE
     Indication: ANTIDIARRHOEAL SUPPORTIVE CARE
     Dosage: 1 MG, 1 IN
     Route: 042
     Dates: start: 20150323
  3. LASIX [Concomitant]
     Active Substance: FUROSEMIDE
     Dosage: 20 MG, 1 IN
     Route: 042
     Dates: start: 20150409, end: 20150409
  4. LASIX [Concomitant]
     Active Substance: FUROSEMIDE
     Dosage: 10 MG, 1 IN
     Route: 042
     Dates: start: 20150409, end: 20150411
  5. NOXAFIL [Concomitant]
     Active Substance: POSACONAZOLE
     Indication: ANTIFUNGAL PROPHYLAXIS
     Dosage: 5 ML, 1 IN
     Route: 048
     Dates: start: 20141204
  6. CITOPCIN [Concomitant]
     Indication: INFECTION PROPHYLAXIS
     Dosage: 500 MG, 2 IN
     Route: 048
     Dates: start: 20141204
  7. DACOGEN [Suspect]
     Active Substance: DECITABINE
     Indication: MYELODYSPLASTIC SYNDROME
     Dosage: 20 MG/M2, 1 IN 1 DAY
     Route: 042
     Dates: start: 20141208, end: 20141212
  8. DACOGEN [Suspect]
     Active Substance: DECITABINE
     Dosage: 20 MG/M2, 1 IN 1 DAY
     Route: 042
     Dates: start: 20150105, end: 20150109
  9. ALBUMIN [Concomitant]
     Active Substance: ALBUMIN (HUMAN)
     Indication: DIURETIC THERAPY
     Dosage: 100 ML, UNK
     Route: 042
     Dates: start: 20150409, end: 20150410
  10. AMARYL M [Concomitant]
     Active Substance: GLIMEPIRIDE\METFORMIN
     Indication: DIURETIC THERAPY
     Dosage: 2 MG, 1 IN 1 DAY
     Route: 042
     Dates: start: 20150414
  11. DIGOXIN. [Concomitant]
     Active Substance: DIGOXIN
     Indication: ATRIAL FIBRILLATION
     Dosage: 0.125 MG, 1 IN
     Route: 048
     Dates: start: 20141204
  12. LASIX [Concomitant]
     Active Substance: FUROSEMIDE
     Dosage: 20 MG, 1 IN
     Route: 042
     Dates: start: 20150411, end: 20150411
  13. TORASEMIDE [Concomitant]
     Active Substance: TORSEMIDE
     Indication: HYPERTENSION
     Dosage: 5 MG, 1 IN
     Route: 048
     Dates: start: 20150209, end: 20150402
  14. GRASIN [Concomitant]
     Indication: NEUTROPENIA
     Dosage: 300 UG/HR, 1 IN
     Route: 058
     Dates: start: 20150407, end: 20150409
  15. LASIX [Concomitant]
     Active Substance: FUROSEMIDE
     Dosage: 20 MG, 2 IN
     Route: 042
     Dates: start: 20150408, end: 20150408
  16. MACPERAN [Concomitant]
     Indication: PROPHYLAXIS OF NAUSEA AND VOMITING
     Dosage: 10 MG, 3 IN
     Route: 042
     Dates: start: 20150414, end: 20150417
  17. PENTASA [Concomitant]
     Active Substance: MESALAMINE
     Indication: COLITIS ULCERATIVE
     Dosage: 1000 MG, 3 IN
     Route: 048
     Dates: start: 20141204
  18. INSULIN LISPRO [Concomitant]
     Active Substance: INSULIN LISPRO
     Indication: DIABETES MELLITUS MANAGEMENT
     Dosage: UNK, 1 IN
     Route: 058
     Dates: start: 20150412, end: 20150412
  19. INSULIN LISPRO [Concomitant]
     Active Substance: INSULIN LISPRO
     Dosage: UNK, 1 IN
     Route: 058
     Dates: start: 20150415, end: 20150415
  20. LASIX [Concomitant]
     Active Substance: FUROSEMIDE
     Dosage: 10 MG, 1 IN
     Route: 042
     Dates: start: 20150416, end: 20150416
  21. NUTRIFLEX [Concomitant]
     Active Substance: AMINO ACIDS\CARBOHYDRATES\ELECTROLYTES NOS
     Indication: NUTRITIONAL SUPPLEMENTATION
     Dosage: 625 ML, 1 IN
     Route: 042
     Dates: start: 20150407, end: 20150412
  22. GRASIN [Concomitant]
     Dosage: 300 UG/HR 1 IN
     Route: 058
     Dates: start: 20150411, end: 20150411
  23. PHENIRAMINE [Concomitant]
     Active Substance: PHENIRAMINE
     Indication: PREMEDICATION
     Dosage: 4 MG, 1 IN
     Route: 042
  24. ASPIRIN. [Concomitant]
     Active Substance: ASPIRIN
     Indication: HYPERTENSION
     Dosage: 100 MG, 1 IN
     Route: 048
     Dates: start: 20141204
  25. ALBUMIN [Concomitant]
     Active Substance: ALBUMIN (HUMAN)
     Dosage: 100 ML, UNK
     Route: 042
     Dates: start: 20150416, end: 20150416
  26. LASIX [Concomitant]
     Active Substance: FUROSEMIDE
     Indication: DIURETIC THERAPY
     Dosage: 10 MG, 1 IN
     Route: 042
     Dates: start: 20150331, end: 20150331
  27. SPIRONOLACTONE. [Concomitant]
     Active Substance: SPIRONOLACTONE
     Indication: DIURETIC THERAPY
     Dosage: 12.5 MG, 2 IN
     Route: 048
     Dates: start: 20150202, end: 20150402
  28. GLIMEPIRIDE W/METFORMIN [Concomitant]
     Indication: DIABETES MELLITUS MANAGEMENT
     Dosage: 2 MG, 1 IN
     Route: 048
     Dates: start: 20150202, end: 20150407
  29. INSULIN LISPRO [Concomitant]
     Active Substance: INSULIN LISPRO
     Dosage: UNK, 1 IN
     Route: 058
     Dates: start: 20150414, end: 20150414

REACTIONS (1)
  - Colitis ulcerative [Recovered/Resolved]

NARRATIVE: CASE EVENT DATE: 20150407
